FAERS Safety Report 11243958 (Version 1)
Quarter: 2015Q3

REPORT INFORMATION
  Report Type: Spontaneous
  Country: US (occurrence: None)
  Receive Date: 20150706
  Receipt Date: 20150706
  Transmission Date: 20151125
  Serious: No
  Sender: FDA-Public Use
  Company Number: None

PATIENT
  Sex: Female

DRUGS (2)
  1. PERCOCET [Suspect]
     Active Substance: ACETAMINOPHEN\OXYCODONE HYDROCHLORIDE
  2. SOMA [Suspect]
     Active Substance: CARISOPRODOL

REACTIONS (4)
  - Wrong drug administered [None]
  - Overdose [None]
  - Drug dispensing error [None]
  - Pain [None]

NARRATIVE: CASE EVENT DATE: 2015
